FAERS Safety Report 4898671-9 (Version None)
Quarter: 2006Q1

REPORT INFORMATION
  Report Type: 
  Country: None (occurrence: None)
  Receive Date: 20060127
  Receipt Date: 20060110
  Transmission Date: 20060701
  Serious: Yes (Life-Threatening, Hospitalization)
  Sender: FDA-Public Use
  Company Number: US200511001039

PATIENT
  Age: 47 Year
  Sex: Male
  Weight: 87.5 kg

DRUGS (8)
  1. STRATTERA [Suspect]
     Indication: ATTENTION DEFICIT/HYPERACTIVITY DISORDER
     Dosage: 25 MG, EACH MORNING, ORAL
     Route: 048
     Dates: start: 20050511, end: 20050713
  2. CLOZAPINE [Concomitant]
  3. CYMBALTA [Concomitant]
  4. MIRALAX [Concomitant]
  5. ZYRTEC /GFR/ (CETIRIZINE HYDROCHLORIDE) [Concomitant]
  6. DEPAKOTE [Concomitant]
  7. NIASPAN [Concomitant]
  8. ATIVAN [Concomitant]

REACTIONS (3)
  - BLOOD PRESSURE DECREASED [None]
  - DRUG INTERACTION [None]
  - PYREXIA [None]
